FAERS Safety Report 15037045 (Version 2)
Quarter: 2018Q3

REPORT INFORMATION
  Report Type: Spontaneous
  Country: US (occurrence: US)
  Receive Date: 20180620
  Receipt Date: 20180817
  Transmission Date: 20181010
  Serious: Yes (Hospitalization)
  Sender: FDA-Public Use
  Company Number: US-BIOVITRUM-2018US0700

PATIENT
  Age: 19 Month
  Sex: Male

DRUGS (4)
  1. KINERET [Suspect]
     Active Substance: ANAKINRA
     Indication: STILL^S DISEASE
     Route: 058
     Dates: start: 20161012, end: 20161105
  2. PREDNISOLONE. [Concomitant]
     Active Substance: PREDNISOLONE
     Route: 048
     Dates: start: 20161012, end: 20170129
  3. KINERET [Suspect]
     Active Substance: ANAKINRA
     Route: 058
     Dates: start: 20161105, end: 20170129
  4. PREDNISOLONE. [Concomitant]
     Active Substance: PREDNISOLONE
     Dates: start: 20170129

REACTIONS (8)
  - Rash generalised [Recovering/Resolving]
  - Upper respiratory tract infection [Recovered/Resolved]
  - Otitis media acute [Recovered/Resolved]
  - Poor peripheral circulation [Unknown]
  - Drug ineffective [Unknown]
  - Histiocytosis haematophagic [Recovered/Resolved]
  - Gastrointestinal infection [Recovered/Resolved]
  - Dyspnoea [Unknown]

NARRATIVE: CASE EVENT DATE: 2017
